FAERS Safety Report 11704235 (Version 1)
Quarter: 2015Q4

REPORT INFORMATION
  Report Type: Spontaneous
  Country: HU (occurrence: HU)
  Receive Date: 20151106
  Receipt Date: 20151106
  Transmission Date: 20160304
  Serious: Yes (Other)
  Sender: FDA-Public Use
  Company Number: HU-ACTAVIS-2015-23758

PATIENT
  Age: 42 Year
  Sex: Female

DRUGS (1)
  1. LEVOSERT [Suspect]
     Active Substance: LEVONORGESTREL
     Indication: PRODUCT USED FOR UNKNOWN INDICATION
     Dosage: INITIAL RELEASE RATE IS 20 MCG/ 24 HRS
     Route: 015

REACTIONS (3)
  - Muscle spasms [Unknown]
  - Device dislocation [Unknown]
  - Pyrexia [Unknown]
